FAERS Safety Report 9291096 (Version 1)
Quarter: 2013Q2

REPORT INFORMATION
  Report Type: Spontaneous
  Country: NO (occurrence: NO)
  Receive Date: 20130515
  Receipt Date: 20130515
  Transmission Date: 20140414
  Serious: Yes (Hospitalization)
  Sender: FDA-Public Use
  Company Number: NO-PFIZER INC-2013150422

PATIENT
  Age: 55 Year
  Sex: Male

DRUGS (3)
  1. EFEXOR DEPOT [Suspect]
     Route: 048
     Dates: start: 201302
  2. AMLODIPINE [Concomitant]
     Route: 048
  3. HYDROCHLOROTHIAZIDE/LOSARTAN [Concomitant]
     Route: 048

REACTIONS (8)
  - Neutropenic sepsis [Recovering/Resolving]
  - Agranulocytosis [Recovering/Resolving]
  - Abscess [Unknown]
  - Blood fibrinogen increased [Unknown]
  - Serum ferritin increased [Unknown]
  - Platelet count increased [Unknown]
  - Blood immunoglobulin M increased [Unknown]
  - C-reactive protein increased [Unknown]
